FAERS Safety Report 23161762 (Version 1)
Quarter: 2023Q4

REPORT INFORMATION
  Report Type: Spontaneous
  Country: CN (occurrence: CN)
  Receive Date: 20231108
  Receipt Date: 20231108
  Transmission Date: 20240110
  Serious: Yes (Hospitalization, Other)
  Sender: FDA-Public Use
  Company Number: None

PATIENT
  Age: 54 Year
  Sex: Female
  Weight: 54 kg

DRUGS (4)
  1. CYCLOPHOSPHAMIDE [Suspect]
     Active Substance: CYCLOPHOSPHAMIDE
     Indication: Breast cancer female
     Dosage: 0.9 G, ONE TIME IN ONE DAY, DILUTED WITH 0.9% SODIUM CHLORIDE 100 ML, FIRST CHEMOTHERAPY
     Route: 041
     Dates: start: 20231009, end: 20231009
  2. SODIUM CHLORIDE [Suspect]
     Active Substance: SODIUM CHLORIDE
     Indication: Medication dilution
     Dosage: 0.9% 100 ML, ONE TIME IN ONE DAY, USED TO DILUTE CYCLOPHOSPHAMIDE 0.9 G
     Route: 041
     Dates: start: 20231009, end: 20231009
  3. SODIUM CHLORIDE [Suspect]
     Active Substance: SODIUM CHLORIDE
     Dosage: 0.9% 250 ML, ONE TIME IN ONE DAY, USED TO DILUTE EPIRUBICIN 130MG
     Route: 041
     Dates: start: 20231009, end: 20231009
  4. EPIRUBICIN HYDROCHLORIDE [Suspect]
     Active Substance: EPIRUBICIN HYDROCHLORIDE
     Indication: Breast cancer female
     Dosage: 130 MG, ONE TIME IN ONE DAY, DILUTED WITH 0.9% SODIUM CHLORIDE 250 ML, FIRST CHEMOTHERAPY
     Route: 041
     Dates: start: 20231009, end: 20231009

REACTIONS (4)
  - Myelosuppression [Recovering/Resolving]
  - Granulocyte count decreased [Recovering/Resolving]
  - Full blood count decreased [Recovering/Resolving]
  - Pyrexia [Recovered/Resolved]

NARRATIVE: CASE EVENT DATE: 20231012
